FAERS Safety Report 8920968 (Version 1)
Quarter: 2012Q4

REPORT INFORMATION
  Report Type: 
  Country: FR (occurrence: FR)
  Receive Date: 20121121
  Receipt Date: 20121121
  Transmission Date: 20130627
  Serious: Yes (Hospitalization)
  Sender: FDA-Public Use
  Company Number: FR-ACTELION-A-CH2012-73277

PATIENT
  Age: 76 Year
  Sex: Female
  Weight: 57 kg

DRUGS (6)
  1. TRACLEER [Suspect]
     Indication: PULMONARY ARTERIAL HYPERTENSION
     Dosage: 125 mg, bid
     Route: 048
     Dates: start: 201209
  2. REVATIO [Concomitant]
     Dosage: 20 mg, tid
  3. LASILIX [Concomitant]
     Dosage: 40 UNK, od
  4. ALDACTONE [Concomitant]
     Dosage: 25 UNK, od
  5. ZOCOR [Concomitant]
  6. PREVISCAN [Concomitant]

REACTIONS (11)
  - Acute respiratory failure [Recovering/Resolving]
  - Cardiac failure [Recovering/Resolving]
  - Pulmonary veno-occlusive disease [Recovering/Resolving]
  - Dyspnoea [Recovering/Resolving]
  - Oxygen saturation decreased [Recovering/Resolving]
  - Pulmonary oedema [Recovering/Resolving]
  - Asthma [Recovering/Resolving]
  - Blood pressure increased [Recovering/Resolving]
  - Pleural effusion [Recovering/Resolving]
  - Flank pain [Recovering/Resolving]
  - Chromaturia [Unknown]
